FAERS Safety Report 21121209 (Version 4)
Quarter: 2023Q2

REPORT INFORMATION
  Report Type: Spontaneous
  Country: US (occurrence: US)
  Receive Date: 20220722
  Receipt Date: 20230606
  Transmission Date: 20230721
  Serious: Yes (Other)
  Sender: FDA-Public Use
  Company Number: US-PFIZER INC-PV202200027802

PATIENT
  Age: 68 Year
  Sex: Female

DRUGS (1)
  1. IBRANCE [Suspect]
     Active Substance: PALBOCICLIB
     Dosage: 125 MG

REACTIONS (5)
  - Cancer surgery [Unknown]
  - Fatigue [Unknown]
  - Memory impairment [Unknown]
  - Neoplasm progression [Unknown]
  - Asthenia [Unknown]

NARRATIVE: CASE EVENT DATE: 20230501
